FAERS Safety Report 20567643 (Version 1)
Quarter: 2022Q1

REPORT INFORMATION
  Report Type: Spontaneous
  Country: FR (occurrence: FR)
  Receive Date: 20220308
  Receipt Date: 20220308
  Transmission Date: 20220423
  Serious: Yes (Other)
  Sender: FDA-Public Use
  Company Number: FR-RECORDATI-2022000858

PATIENT

DRUGS (5)
  1. OSILODROSTAT [Suspect]
     Active Substance: OSILODROSTAT
     Indication: Pituitary-dependent Cushing^s syndrome
     Dosage: 2 MILLIGRAM, BID (1MG 2-0-2)
     Dates: start: 20190503
  2. OSILODROSTAT [Suspect]
     Active Substance: OSILODROSTAT
     Dosage: 5 MILLIGRAM, BID (5MG 1-0-1)
     Dates: start: 20190605, end: 20190708
  3. OSILODROSTAT [Suspect]
     Active Substance: OSILODROSTAT
     Dosage: UNK, QD, 0-0-5
     Dates: start: 20190801
  4. OSILODROSTAT [Suspect]
     Active Substance: OSILODROSTAT
     Dosage: UNK, QD, 0-0-3
     Dates: start: 20191126, end: 20200114
  5. OSILODROSTAT [Suspect]
     Active Substance: OSILODROSTAT
     Dosage: 3 MILLIGRAM
     Dates: start: 20200117, end: 20200609

REACTIONS (2)
  - Adrenal insufficiency [Unknown]
  - Product use in unapproved indication [Recovered/Resolved]

NARRATIVE: CASE EVENT DATE: 20190503
